FAERS Safety Report 11451200 (Version 1)
Quarter: 2015Q3

REPORT INFORMATION
  Report Type: Spontaneous
  Country: CA (occurrence: CA)
  Receive Date: 20150903
  Receipt Date: 20150903
  Transmission Date: 20151125
  Serious: Yes (Hospitalization)
  Sender: FDA-Public Use
  Company Number: CA-TEVA-590833ACC

PATIENT
  Age: 86 Year
  Sex: Female

DRUGS (8)
  1. GALANTAMINE. [Concomitant]
     Active Substance: GALANTAMINE
  2. RALOXIFENE. [Concomitant]
     Active Substance: RALOXIFENE
  3. ASA [Suspect]
     Active Substance: ASPIRIN
     Indication: CEREBROVASCULAR ACCIDENT
     Dosage: 80 MILLIGRAM DAILY;
     Route: 048
  4. CALCIUM [Concomitant]
     Active Substance: CALCIUM
  5. VITALUX NOS [Concomitant]
  6. COMPLEXE B COMPOSE 50 [Concomitant]
  7. VENLAFAXINE XR [Suspect]
     Active Substance: VENLAFAXINE HYDROCHLORIDE
     Indication: DEPRESSION
     Dosage: 112.5 MILLIGRAM DAILY;
     Route: 048
  8. VITAMIN D [Concomitant]
     Active Substance: CHOLECALCIFEROL

REACTIONS (3)
  - Contusion [Recovered/Resolved]
  - Platelet count increased [Recovered/Resolved]
  - Ecchymosis [Recovered/Resolved]
